FAERS Safety Report 9742896 (Version 1)
Quarter: 2013Q4

REPORT INFORMATION
  Report Type: Spontaneous
  Country: FR (occurrence: IT)
  Receive Date: 20131210
  Receipt Date: 20131210
  Transmission Date: 20140711
  Serious: Yes (Other)
  Sender: FDA-Public Use
  Company Number: FR-OTSUKA-US-2013-12302

PATIENT
  Age: 19 Year
  Sex: Male

DRUGS (3)
  1. BUSULFEX [Suspect]
     Indication: STEM CELL TRANSPLANT
     Dosage: UNK
  2. FLUDARABINE [Suspect]
     Indication: STEM CELL TRANSPLANT
  3. THIOTEPA [Suspect]
     Indication: STEM CELL TRANSPLANT

REACTIONS (1)
  - Osteosarcoma [Unknown]
